FAERS Safety Report 7298112-0 (Version None)
Quarter: 2011Q1

REPORT INFORMATION
  Report Type: 
  Country: None (occurrence: None)
  Receive Date: 20110217
  Receipt Date: 20110209
  Transmission Date: 20110831
  Serious: Yes (Other)
  Sender: FDA-Public Use
  Company Number: US-JNJFOC-20110203233

PATIENT
  Sex: Female
  Weight: 75.75 kg

DRUGS (3)
  1. REMICADE [Suspect]
     Indication: COLITIS ULCERATIVE
     Route: 042
  2. IMURAN [Concomitant]
  3. REMICADE [Suspect]
     Indication: RHEUMATOID ARTHRITIS
     Route: 042

REACTIONS (4)
  - FALL [None]
  - MUSCLE SPASMS [None]
  - ARTHRALGIA [None]
  - BURSITIS [None]
